FAERS Safety Report 14672562 (Version 3)
Quarter: 2018Q2

REPORT INFORMATION
  Report Type: Spontaneous
  Country: US (occurrence: US)
  Receive Date: 20180323
  Receipt Date: 20180530
  Transmission Date: 20180711
  Serious: No
  Sender: FDA-Public Use
  Company Number: US-PFIZER INC-2018122311

PATIENT
  Age: 49 Year
  Sex: Female

DRUGS (1)
  1. LYRICA [Suspect]
     Active Substance: PREGABALIN
     Indication: MYALGIA
     Dosage: 75 MG, 2X/DAY,(AT BEDTIME)
     Route: 048
     Dates: start: 20171006

REACTIONS (2)
  - Product use in unapproved indication [Unknown]
  - Euphoric mood [Recovered/Resolved]

NARRATIVE: CASE EVENT DATE: 20171006
